FAERS Safety Report 7189503-7 (Version None)
Quarter: 2010Q4

REPORT INFORMATION
  Report Type: 
  Country: None (occurrence: None)
  Receive Date: 20101223
  Receipt Date: 20101213
  Transmission Date: 20110411
  Serious: Yes (Hospitalization)
  Sender: FDA-Public Use
  Company Number: US-BIOGENIDEC-2010BI007429

PATIENT
  Age: 53 Year
  Sex: Female

DRUGS (1)
  1. AVONEX [Suspect]
     Indication: MULTIPLE SCLEROSIS
     Route: 030
     Dates: start: 20040312

REACTIONS (10)
  - BACK PAIN [None]
  - BURNING SENSATION [None]
  - COGNITIVE DISORDER [None]
  - INFLUENZA LIKE ILLNESS [None]
  - INJECTION SITE PAIN [None]
  - INTERVERTEBRAL DISC DISPLACEMENT [None]
  - INTERVERTEBRAL DISC INJURY [None]
  - MUSCLE SPASMS [None]
  - PAIN [None]
  - PARAESTHESIA [None]
